FAERS Safety Report 4736294-2 (Version None)
Quarter: 2005Q3

REPORT INFORMATION
  Report Type: 
  Country: None (occurrence: None)
  Receive Date: 20050804
  Receipt Date: 20050722
  Transmission Date: 20060218
  Serious: Yes (Hospitalization)
  Sender: FDA-Public Use
  Company Number: 2005106230

PATIENT
  Age: 59 Year
  Sex: Male

DRUGS (13)
  1. IRINOTECAN HCL [Suspect]
     Indication: ANAPLASTIC ASTROCYTOMA
     Dosage: 215 MG (215 MG) INTRAVENOUS
     Route: 042
     Dates: start: 20050701, end: 20050708
  2. THALIDOMIDE (THALIDOMIDE) [Suspect]
     Indication: ANAPLASTIC ASTROCYTOMA
     Dosage: 200 MG (200 MG, 1 IN 1 D), ORAL
     Route: 048
     Dates: start: 20050701, end: 20050713
  3. POLYETHYLENE GLYCOL [Concomitant]
  4. GLYBURIDE [Concomitant]
  5. INSULIN [Concomitant]
  6. LAMICTAL [Concomitant]
  7. CITALOPRAM [Concomitant]
  8. DECADRON [Concomitant]
  9. ZOCOR [Concomitant]
  10. FISH OIL [Concomitant]
  11. COUMADIN [Concomitant]
  12. THALIDOMIDE [Concomitant]
  13. ZESTRIL [Concomitant]

REACTIONS (10)
  - ASTHENIA [None]
  - BODY TEMPERATURE INCREASED [None]
  - BRAIN OEDEMA [None]
  - CONFUSIONAL STATE [None]
  - COORDINATION ABNORMAL [None]
  - DIZZINESS [None]
  - FALL [None]
  - HYPERGLYCAEMIA [None]
  - HYPOXIA [None]
  - OXYGEN SATURATION DECREASED [None]
